FAERS Safety Report 9687590 (Version 1)
Quarter: 2013Q4

REPORT INFORMATION
  Report Type: Spontaneous
  Country: US (occurrence: US)
  Receive Date: 20131114
  Receipt Date: 20131114
  Transmission Date: 20140711
  Serious: No
  Sender: FDA-Public Use
  Company Number: US-009507513-1311USA001313

PATIENT
  Age: 54 Year
  Sex: Male

DRUGS (2)
  1. VORINOSTAT [Suspect]
     Indication: PERIPHERAL T-CELL LYMPHOMA UNSPECIFIED REFRACTORY
     Dosage: 200 MG, DAILY
  2. VORINOSTAT [Suspect]
     Indication: GRAFT VERSUS HOST DISEASE

REACTIONS (3)
  - Transaminases increased [Recovered/Resolved]
  - Cytomegalovirus gastritis [Recovered/Resolved]
  - Off label use [Unknown]
